FAERS Safety Report 20936036 (Version 2)
Quarter: 2022Q4

REPORT INFORMATION
  Report Type: Report from Study
  Country: DE (occurrence: None)
  Receive Date: 20220609
  Receipt Date: 20221114
  Transmission Date: 20230113
  Serious: Yes (Hospitalization)
  Sender: FDA-Public Use
  Company Number: DE-ROCHE-3108664

PATIENT
  Age: 39 Year
  Sex: Female
  Weight: 66 kg

DRUGS (26)
  1. ATEZOLIZUMAB [Suspect]
     Active Substance: ATEZOLIZUMAB
     Indication: Triple negative breast cancer
     Dosage: DATE OF LAST DOSE PRIOR TO SAE: 27/JAN/2022
     Route: 041
     Dates: start: 20211021
  2. PACLITAXEL [Suspect]
     Active Substance: PACLITAXEL
     Indication: Triple negative breast cancer
     Dosage: DATE OF LAST DOSE PRIOR TO SAE: 20/JAN/2022
     Route: 042
     Dates: start: 20211104
  3. CYCLOPHOSPHAMIDE [Suspect]
     Active Substance: CYCLOPHOSPHAMIDE
     Indication: Triple negative breast cancer
     Dosage: LAST DOSE PRIOR TO SAE WAS 27/JAN/2022
     Route: 042
     Dates: start: 20220127
  4. CARBOPLATIN [Suspect]
     Active Substance: CARBOPLATIN
     Indication: Triple negative breast cancer
     Dosage: DATE OF LAST DOSE PRIOR TO SAE: 20/JAN/2022
     Route: 042
     Dates: start: 20211104
  5. EPIRUBICIN [Suspect]
     Active Substance: EPIRUBICIN
     Indication: Triple negative breast cancer
     Dosage: DATE OF LAST DOSE PRIOR TO SAE: 27/JAN/2022
     Route: 042
     Dates: start: 20220127
  6. LEVOTHYROXINE SODIUM [Concomitant]
     Active Substance: LEVOTHYROXINE SODIUM
     Dosage: 75 UG ONCE DAILY
  7. BISOPROLOL [Concomitant]
     Active Substance: BISOPROLOL
     Dosage: 1,25 MG ONCE DAILY
  8. TIANEPTINE SODIUM [Concomitant]
     Active Substance: TIANEPTINE SODIUM
     Dosage: 12,5 MG TWICE DAILY
  9. FOLIC ACID [Concomitant]
     Active Substance: FOLIC ACID
  10. CHOLECALCIFEROL [Concomitant]
     Active Substance: CHOLECALCIFEROL
     Dosage: 20000 IE WEEKLY
  11. MCP [Concomitant]
     Active Substance: METOCLOPRAMIDE HYDROCHLORIDE
     Dates: start: 20211006
  12. DEXAMETHASONE [Concomitant]
     Active Substance: DEXAMETHASONE
     Dates: start: 20211006
  13. ONDANSETRON [Concomitant]
     Active Substance: ONDANSETRON
     Dates: start: 20211006
  14. SELENASE [Concomitant]
     Dosage: 300 UG ONCE DAILY
     Dates: start: 20211006
  15. ZOLADEX [Concomitant]
     Active Substance: GOSERELIN ACETATE
     Dosage: 3,6 MG MONTHLY
     Dates: start: 20211011
  16. PANTOPRAZOLE SODIUM [Concomitant]
     Active Substance: PANTOPRAZOLE SODIUM
     Dosage: 40 MG AS NEEDED
     Dates: start: 20211108
  17. FILGRASTIM [Concomitant]
     Active Substance: FILGRASTIM
     Dosage: 30.000.000 IE AS?NEEDED
     Dates: start: 20211115
  18. FILGRASTIM [Concomitant]
     Active Substance: FILGRASTIM
     Dosage: 30.000000 IU ONCE?DAILY
     Dates: start: 20220203, end: 20220203
  19. HUMAN RED BLOOD CELL [Concomitant]
     Active Substance: HUMAN RED BLOOD CELL
     Dosage: 1 PACK ONCE DAILY
     Dates: start: 20220203, end: 20220203
  20. HUMAN RED BLOOD CELL [Concomitant]
     Active Substance: HUMAN RED BLOOD CELL
     Dosage: 1 PACK ONCE DAILY
     Dates: start: 20220206, end: 20220206
  21. PLATELETS [Concomitant]
     Active Substance: HUMAN PLATELET, ALLOGENIC
     Dosage: 1 PACK ONCE DAILY
     Dates: start: 20220205, end: 20220206
  22. UNACID [Concomitant]
     Dosage: 1,5 G THREE TIMES DAILY
     Dates: start: 20220203, end: 20220205
  23. CIPROFLOXACIN [Concomitant]
     Active Substance: CIPROFLOXACIN
     Dosage: 400 MG TWICE DAILY
     Dates: start: 20220203, end: 20220205
  24. MEROPENEM [Concomitant]
     Active Substance: MEROPENEM
     Dosage: 1 G THREE TIMES DAILY
     Dates: start: 20220205, end: 20220212
  25. ACYCLOVIR [Concomitant]
     Active Substance: ACYCLOVIR
     Dosage: 375 MG THREE TIMES?DAILY
     Dates: start: 20220206, end: 20220212
  26. MOVICOL [Concomitant]
     Active Substance: POLYETHYLENE GLYCOL 3350\POTASSIUM CHLORIDE\SODIUM BICARBONATE\SODIUM CHLORIDE
     Dosage: ONE POUCH AS NEEDED
     Dates: start: 20211227, end: 20220223

REACTIONS (1)
  - Wound complication [Recovered/Resolved]

NARRATIVE: CASE EVENT DATE: 20220502
